FAERS Safety Report 11849525 (Version 1)
Quarter: 2015Q4

REPORT INFORMATION
  Report Type: Spontaneous
  Country: US (occurrence: None)
  Receive Date: 20151217
  Receipt Date: 20151217
  Transmission Date: 20160305
  Serious: Yes (Hospitalization)
  Sender: FDA-Public Use
  Company Number: None

PATIENT
  Age: 61 Year
  Sex: Female
  Weight: 99 kg

DRUGS (1)
  1. TEMOZOLOMIDE. [Suspect]
     Active Substance: TEMOZOLOMIDE
     Dosage: MISSED 12/01/2015
     Dates: end: 20151130

REACTIONS (9)
  - Asthenia [None]
  - Nausea [None]
  - Abasia [None]
  - Hemiparesis [None]
  - Headache [None]
  - Vomiting [None]
  - Somnolence [None]
  - Oedema [None]
  - Pyrexia [None]

NARRATIVE: CASE EVENT DATE: 20151201
